FAERS Safety Report 7902889-8 (Version None)
Quarter: 2011Q4

REPORT INFORMATION
  Report Type: 
  Country: None (occurrence: None)
  Receive Date: 20111107
  Receipt Date: 20111102
  Transmission Date: 20120403
  Serious: Yes (Life-Threatening)
  Sender: FDA-Public Use
  Company Number: 2011SP027064

PATIENT
  Age: 65 Year
  Sex: Male
  Weight: 72 kg

DRUGS (5)
  1. ROCURONIUM BROMIDE [Suspect]
     Indication: NEUROMUSCULAR BLOCKING THERAPY
     Dosage: 280 MG;IV
     Route: 042
     Dates: start: 20110413, end: 20110413
  2. XYLOCAINE [Suspect]
     Indication: INDUCTION OF ANAESTHESIA
     Dosage: 2 ML;OROP
     Route: 049
     Dates: start: 20110413, end: 20110413
  3. ULTIVA [Suspect]
     Indication: INDUCTION OF ANAESTHESIA
     Dosage: IV
     Route: 042
     Dates: start: 20110413, end: 20110413
  4. UNASYN [Suspect]
     Indication: ANTIBIOTIC PROPHYLAXIS
     Dosage: 1.5 GM;IV
     Route: 042
     Dates: start: 20110413, end: 20110413
  5. PROPOFOL [Suspect]
     Indication: INDUCTION OF ANAESTHESIA
     Dosage: 70 MG;IV
     Route: 042
     Dates: start: 20110413, end: 20110413

REACTIONS (7)
  - ARTERIOSPASM CORONARY [None]
  - SKIN TEST POSITIVE [None]
  - GENERALISED ERYTHEMA [None]
  - ANAPHYLACTIC SHOCK [None]
  - ELECTROCARDIOGRAM ST SEGMENT ELEVATION [None]
  - COUGH [None]
  - TACHYCARDIA [None]
